FAERS Safety Report 5348803-3 (Version None)
Quarter: 2007Q2

REPORT INFORMATION
  Report Type: 
  Country: None (occurrence: None)
  Receive Date: 20070607
  Receipt Date: 20070529
  Transmission Date: 20071010
  Serious: Yes (Other)
  Sender: FDA-Public Use
  Company Number: GB-JNJFOC-20070301400

PATIENT
  Sex: Male
  Weight: 72.8 kg

DRUGS (2)
  1. REMICADE [Suspect]
     Indication: ANKYLOSING SPONDYLITIS
     Route: 042
  2. BREXIDOL [Concomitant]

REACTIONS (2)
  - DISSEMINATED TUBERCULOSIS [None]
  - GRANULOMA [None]
